FAERS Safety Report 8860917 (Version 1)
Quarter: 2012Q4

REPORT INFORMATION
  Report Type: 
  Country: US (occurrence: US)
  Receive Date: 20121025
  Receipt Date: 20121025
  Transmission Date: 20130627
  Serious: Yes (Other)
  Sender: FDA-Public Use
  Company Number: CHPA2012US018494

PATIENT
  Age: 82 Year
  Sex: Female

DRUGS (3)
  1. BENEFIBER SUGAR FREE [Suspect]
     Indication: CONSTIPATION
     Dosage: 3 DF, QD
     Route: 048
  2. METAMUCIL [Suspect]
     Dosage: Unk, Unk
  3. MIRALAX [Suspect]
     Dosage: Unk, Unk

REACTIONS (3)
  - Arterial occlusive disease [Unknown]
  - Blood cholesterol increased [Unknown]
  - Malaise [Unknown]
